FAERS Safety Report 8868409 (Version 1)
Quarter: 2012Q4

REPORT INFORMATION
  Report Type: 
  Country: US (occurrence: US)
  Receive Date: 20121026
  Receipt Date: 20121026
  Transmission Date: 20130627
  Serious: No
  Sender: FDA-Public Use
  Company Number: US-AMGEN-USASP2012041913

PATIENT
  Age: 66 Year
  Sex: Female

DRUGS (1)
  1. ENBREL [Suspect]
     Indication: RHEUMATOID ARTHRITIS
     Dosage: 50 mg, qwk
     Route: 058
     Dates: start: 201105

REACTIONS (7)
  - Cheilitis [Unknown]
  - Dermatitis [Unknown]
  - Lip pruritus [Unknown]
  - Palmar erythema [Unknown]
  - Erythema [Unknown]
  - Inflammation [Unknown]
  - Pruritus [Unknown]
